FAERS Safety Report 4618646-4 (Version None)
Quarter: 2005Q1

REPORT INFORMATION
  Report Type: 
  Country: None (occurrence: None)
  Receive Date: 20050323
  Receipt Date: 20050310
  Transmission Date: 20050727
  Serious: Yes (Hospitalization)
  Sender: FDA-Public Use
  Company Number: 26232

PATIENT
  Age: 79 Year
  Sex: Female

DRUGS (2)
  1. ALDARA [Suspect]
     Indication: ACTINIC KERATOSIS
     Dosage: 1 SACHET, 3 IN 1 WEEK(S), TOPICAL
     Route: 061
     Dates: start: 20050131, end: 20050209
  2. COUMADIN [Suspect]

REACTIONS (8)
  - APPLICATION SITE DESQUAMATION [None]
  - APPLICATION SITE ERYTHEMA [None]
  - APPLICATION SITE IRRITATION [None]
  - CEREBROVASCULAR ACCIDENT [None]
  - INFLUENZA LIKE ILLNESS [None]
  - INTERNATIONAL NORMALISED RATIO INCREASED [None]
  - MEDICATION ERROR [None]
  - WHITE BLOOD CELL COUNT INCREASED [None]
